FAERS Safety Report 4844790-2 (Version None)
Quarter: 2005Q4

REPORT INFORMATION
  Report Type: 
  Country: None (occurrence: None)
  Receive Date: 20051205
  Receipt Date: 20051024
  Transmission Date: 20060501
  Serious: Yes (Hospitalization)
  Sender: FDA-Public Use
  Company Number: FR-BRISTOL-MYERS SQUIBB COMPANY-13158217

PATIENT
  Age: 53 Year
  Sex: Male

DRUGS (13)
  1. AMIKLIN INJ 500 MG [Suspect]
     Indication: MYCOBACTERIAL INFECTION
     Route: 042
     Dates: start: 20050812, end: 20051004
  2. VIREAD [Suspect]
     Indication: HIV INFECTION
     Dates: start: 20050617, end: 20051004
  3. ZERIT [Concomitant]
     Dates: start: 20050329
  4. EPIVIR [Concomitant]
     Dosage: RESTARTED ON 17-JUN-2005
     Dates: start: 20050329
  5. VIRAMUNE [Concomitant]
     Dates: start: 20050329
  6. COMBIVIR [Concomitant]
     Dates: start: 20050530
  7. SUSTIVA [Concomitant]
     Dates: start: 20050530
  8. RIFATER [Concomitant]
     Dates: start: 20050530
  9. MYAMBUTOL [Concomitant]
     Dates: start: 20050531
  10. ZECLAR [Concomitant]
     Dates: start: 20050617
  11. RETROVIR [Concomitant]
     Dates: start: 20050617
  12. ANSATIPINE [Concomitant]
     Dates: start: 20050708
  13. IZILOX [Concomitant]
     Dates: start: 20050812

REACTIONS (2)
  - FANCONI SYNDROME [None]
  - RENAL FAILURE ACUTE [None]
